FAERS Safety Report 9114459 (Version 1)
Quarter: 2013Q1

REPORT INFORMATION
  Report Type: Spontaneous
  Country: IT (occurrence: IT)
  Receive Date: 20130208
  Receipt Date: 20130208
  Transmission Date: 20140127
  Serious: Yes (Other)
  Sender: FDA-Public Use
  Company Number: IT-PFIZER INC-2012324629

PATIENT
  Age: 64 Year
  Sex: Male

DRUGS (2)
  1. CISPLATINO [Suspect]
     Indication: PENILE CANCER
     Dosage: 28 MG, 1X/DAY
     Route: 042
     Dates: start: 20120124, end: 20120127
  2. FLUOROURACIL [Suspect]
     Indication: PENILE CANCER
     Dosage: 1154 MG, 1X/DAY
     Route: 042
     Dates: start: 20120124, end: 20120127

REACTIONS (2)
  - Orthopnoea [Recovering/Resolving]
  - Asthenia [Recovering/Resolving]
